FAERS Safety Report 8229171-6 (Version None)
Quarter: 2012Q1

REPORT INFORMATION
  Report Type: 
  Country: None (occurrence: None)
  Receive Date: 20120322
  Receipt Date: 20120315
  Transmission Date: 20120608
  Serious: Yes (Hospitalization, Other)
  Sender: FDA-Public Use
  Company Number: BR-PFIZER INC-2012069793

PATIENT
  Age: 41 Year
  Sex: Male
  Weight: 102 kg

DRUGS (3)
  1. LYRICA [Suspect]
     Indication: BONE PAIN
     Dosage: UNK
     Route: 048
  2. TRAMADOL HYDROCHLORIDE [Suspect]
     Dosage: UNK
  3. GABAPENTIN [Concomitant]
     Dosage: UNK

REACTIONS (9)
  - HEAD INJURY [None]
  - SPONDYLOLISTHESIS [None]
  - MENTAL DISORDER [None]
  - ACCIDENT AT WORK [None]
  - PAIN [None]
  - HYPOAESTHESIA [None]
  - FALL [None]
  - BACK PAIN [None]
  - NERVE ROOT LESION [None]
